FAERS Safety Report 19492682 (Version 1)
Quarter: 2021Q3

REPORT INFORMATION
  Report Type: Spontaneous
  Country: NL (occurrence: NL)
  Receive Date: 20210705
  Receipt Date: 20210705
  Transmission Date: 20211014
  Serious: Yes (Life-Threatening)
  Sender: FDA-Public Use
  Company Number: NL-TEVA-2021-NL-1930140

PATIENT
  Age: 24 Year
  Sex: Male

DRUGS (3)
  1. ESCITALOPRAM TABLET 10MG / LEXAPRO TABLET FILMOMHULD 10MG [Concomitant]
     Dosage: 10 MG (MILLIGRAM), THERAPY START DATE:ASKU, THERAPY END DATE:ASKU
  2. PROMETHAZINE TABLET OMHULD 25MG / BRAND NAME NOT SPECIFIED [Concomitant]
     Dosage: 25 MILLIGRAM DAILY;  AS NEEDED, THERAPY START DATE:ASKU, THERAPY END DATE:ASKU
  3. CLOZAPINE TABLET 100MG / BRAND NAME NOT SPECIFIED [Suspect]
     Active Substance: CLOZAPINE
     Indication: PSYCHOTIC DISORDER
     Dosage: 175 MILLIGRAM DAILY;   ONCE IN THE EVENING
     Dates: start: 20210309, end: 20210328

REACTIONS (1)
  - Myocarditis [Recovered/Resolved]

NARRATIVE: CASE EVENT DATE: 20210328
